FAERS Safety Report 5110569-X (Version None)
Quarter: 2006Q3

REPORT INFORMATION
  Report Type: 
  Country: None (occurrence: None)
  Receive Date: 20060918
  Receipt Date: 20060830
  Transmission Date: 20061208
  Serious: Yes (Hospitalization)
  Sender: FDA-Public Use
  Company Number: 8018758

PATIENT

DRUGS (2)
  1. KEPPRA [Suspect]
  2. ULTRACET [Suspect]

REACTIONS (2)
  - CONFUSIONAL STATE [None]
  - WRONG DRUG ADMINISTERED [None]
